FAERS Safety Report 4898637-9 (Version None)
Quarter: 2006Q1

REPORT INFORMATION
  Report Type: 
  Country: None (occurrence: None)
  Receive Date: 20060130
  Receipt Date: 20060117
  Transmission Date: 20060701
  Serious: Yes (Life-Threatening, Other)
  Sender: FDA-Public Use
  Company Number: GBWYE312018JAN06

PATIENT
  Age: 35 Year
  Sex: Female

DRUGS (5)
  1. MICROVAL (LEVONORGESTREL, TABLET) [Suspect]
     Indication: POST COITAL CONTRACEPTION
     Dosage: 2 TABLETS, ORAL
     Route: 048
     Dates: start: 20050819
  2. SERETIDE (SALMETEROL/FLUTICASONE) [Concomitant]
  3. SUBUTEX [Concomitant]
  4. SALBUTAMOL (SALBUTAMOL) [Concomitant]
  5. HEROIN (DIAMORPHINE) [Concomitant]

REACTIONS (2)
  - INTERNATIONAL NORMALISED RATIO INCREASED [None]
  - VAGINAL HAEMORRHAGE [None]
